FAERS Safety Report 20423612 (Version 1)
Quarter: 2022Q1

REPORT INFORMATION
  Report Type: Spontaneous
  Country: JP (occurrence: JP)
  Receive Date: 20220203
  Receipt Date: 20220203
  Transmission Date: 20220423
  Serious: Yes (Other)
  Sender: FDA-Public Use
  Company Number: JP-SANOFI-2017SA268989

PATIENT
  Age: 19 Month
  Sex: Female
  Weight: 8.8 kg

DRUGS (16)
  1. SABRIL [Suspect]
     Active Substance: VIGABATRIN
     Indication: Infantile spasms
     Dosage: 600 MG, BID
     Route: 048
     Dates: start: 20161008, end: 20161012
  2. SABRIL [Suspect]
     Active Substance: VIGABATRIN
     Dosage: 150 MG, BID
     Route: 048
     Dates: start: 20160921, end: 20160925
  3. SABRIL [Suspect]
     Active Substance: VIGABATRIN
     Dosage: 300 MG, BID
     Route: 048
     Dates: start: 20160926, end: 20161003
  4. SABRIL [Suspect]
     Active Substance: VIGABATRIN
     Dosage: 450 MG, BID
     Route: 048
     Dates: start: 20161004, end: 20161007
  5. SABRIL [Suspect]
     Active Substance: VIGABATRIN
     Dosage: 375 MG, BID
     Route: 048
     Dates: start: 20161013, end: 20170211
  6. SABRIL [Suspect]
     Active Substance: VIGABATRIN
     Dosage: 300 MG, BID
     Route: 048
     Dates: start: 20170212, end: 20170218
  7. SABRIL [Suspect]
     Active Substance: VIGABATRIN
     Dosage: 225 MG, BID
     Route: 048
     Dates: start: 20170219, end: 20170224
  8. SABRIL [Suspect]
     Active Substance: VIGABATRIN
     Dosage: 150 MG, BID
     Route: 048
     Dates: start: 20170225, end: 20170309
  9. SABRIL [Suspect]
     Active Substance: VIGABATRIN
     Dosage: 75 MG, BID
     Route: 048
     Dates: start: 20170310, end: 20170316
  10. LEVETIRACETAM [Concomitant]
     Active Substance: LEVETIRACETAM
     Indication: Infantile spasms
     Dosage: 900 MG/DAY
     Route: 048
  11. ZONISAMIDE [Concomitant]
     Active Substance: ZONISAMIDE
     Indication: Infantile spasms
     Dosage: 80 MG/DAY
     Route: 048
  12. TRICHLORMETHIAZIDE [Concomitant]
     Active Substance: TRICHLORMETHIAZIDE
     Indication: Product used for unknown indication
     Dosage: 0.4 MG/DAY
     Route: 048
  13. LEVOTHYROXINE SODIUM [Concomitant]
     Active Substance: LEVOTHYROXINE SODIUM
     Indication: Product used for unknown indication
     Dosage: 7 MCG/DAY
     Route: 048
     Dates: end: 20161023
  14. CARBOCYSTEINE [Concomitant]
     Active Substance: CARBOCYSTEINE
     Indication: Product used for unknown indication
     Dosage: 200 MG/DAY
     Route: 048
  15. TAURINE [Concomitant]
     Active Substance: TAURINE
     Indication: Prophylaxis
     Dosage: 0.3 G/DAY
     Route: 048
     Dates: start: 20160921, end: 20170316
  16. TAURINE [Concomitant]
     Active Substance: TAURINE
     Indication: Investigation

REACTIONS (4)
  - Retinogram abnormal [Recovered/Resolved]
  - Delayed dark adaptation [Recovered/Resolved]
  - Delayed light adaptation [Recovered/Resolved]
  - Somnolence [Recovered/Resolved]

NARRATIVE: CASE EVENT DATE: 20161012
